FAERS Safety Report 18444533 (Version 1)
Quarter: 2020Q4

REPORT INFORMATION
  Report Type: Spontaneous
  Country: FR (occurrence: FR)
  Receive Date: 20201030
  Receipt Date: 20201030
  Transmission Date: 20210114
  Serious: Yes (Hospitalization)
  Sender: FDA-Public Use
  Company Number: NVSC2020FR287302

PATIENT
  Age: 22 Year
  Sex: Female

DRUGS (9)
  1. MORPHINE [Concomitant]
     Active Substance: MORPHINE
     Indication: DELIVERY
     Dosage: 1 MG, ONCE/SINGLE
     Route: 050
  2. SUFENTA [Concomitant]
     Active Substance: SUFENTANIL CITRATE
     Indication: DELIVERY
     Route: 050
  3. DEXAMETHASONE. [Suspect]
     Active Substance: DEXAMETHASONE
     Indication: CAESAREAN SECTION
     Dosage: 4 MG, ONCE/SINGLE
     Route: 042
  4. DROPERIDOL. [Suspect]
     Active Substance: DROPERIDOL
     Indication: PROPHYLAXIS OF NAUSEA AND VOMITING
     Dosage: 0.63 MG, ONCE/SINGLE
     Route: 042
  5. LEVOBUPIVACAIN [LEVOBUPIVACAINE HYDROCHLORIDE] [Suspect]
     Active Substance: LEVOBUPIVACAINE HYDROCHLORIDE
     Indication: DELIVERY
     Route: 050
  6. SYNTOCINON [Suspect]
     Active Substance: OXYTOCIN
     Indication: DELIVERY
     Dosage: 10 IU
     Route: 042
  7. CEFAZOLIN [Suspect]
     Active Substance: CEFAZOLIN
     Indication: ANTIBIOTIC PROPHYLAXIS
     Dosage: 2 G, ONCE/SINGLE
     Route: 042
  8. XYLOCAINE [Suspect]
     Active Substance: LIDOCAINE HYDROCHLORIDE
     Indication: DELIVERY
     Dosage: 400 MG
     Route: 050
  9. PHENYLEPHRINE [Suspect]
     Active Substance: PHENYLEPHRINE HYDROCHLORIDE
     Indication: PRODUCT USED FOR UNKNOWN INDICATION
     Route: 042

REACTIONS (2)
  - Coma [Recovered/Resolved]
  - Mydriasis [Recovered/Resolved]

NARRATIVE: CASE EVENT DATE: 20200901
